FAERS Safety Report 8509606-1 (Version None)
Quarter: 2012Q3

REPORT INFORMATION
  Report Type: 
  Country: None (occurrence: None)
  Receive Date: 20120713
  Receipt Date: 20120702
  Transmission Date: 20120928
  Serious: Yes (Death)
  Sender: FDA-Public Use
  Company Number: JP-SPECTRUM PHARMACEUTICALS, INC.-11-Z-JP-00129

PATIENT

DRUGS (2)
  1. ZEVALIN [Suspect]
     Indication: LYMPHOMA
     Dosage: UNK, SINGLE
     Route: 042
     Dates: start: 20101214, end: 20101214
  2. ZEVALIN [Suspect]
     Dosage: UNK, SINGLE
     Route: 042
     Dates: start: 20101207, end: 20101207

REACTIONS (4)
  - PANCREATIC CARCINOMA [None]
  - PLATELET COUNT DECREASED [None]
  - WHITE BLOOD CELL COUNT DECREASED [None]
  - NEUTROPHIL COUNT DECREASED [None]
